FAERS Safety Report 7597017-5 (Version None)
Quarter: 2011Q3

REPORT INFORMATION
  Report Type: 
  Country: None (occurrence: None)
  Receive Date: 20110708
  Receipt Date: 20110630
  Transmission Date: 20111222
  Serious: Yes (Death, Other)
  Sender: FDA-Public Use
  Company Number: JP-GENZYME-200913879BYL

PATIENT
  Age: 12 Year
  Sex: Male

DRUGS (26)
  1. MYCOPHENOLATE MOFETIL [Concomitant]
     Indication: PROPHYLAXIS AGAINST GRAFT VERSUS HOST DISEASE
     Dosage: UNK, UNK
     Route: 065
  2. PREDNISOLONE [Concomitant]
     Dosage: 60 MG/M2, QD
     Route: 065
  3. FLUDARA [Suspect]
     Indication: CONGENITAL APLASTIC ANAEMIA
     Dosage: UNK
     Route: 065
     Dates: start: 20080201
  4. ANTI-THYMOCYTE GLOBULIN RABBIT NOS [Suspect]
     Indication: BONE MARROW CONDITIONING REGIMEN
  5. CYTARABINE [Concomitant]
     Indication: PRECURSOR T-LYMPHOBLASTIC LYMPHOMA/LEUKAEMIA
     Dosage: UNK, UNK
     Route: 041
     Dates: start: 20090201
  6. VINCRISTINE SULFATE [Concomitant]
     Indication: PRECURSOR T-LYMPHOBLASTIC LYMPHOMA/LEUKAEMIA
     Dosage: UNK, UNK
     Route: 042
     Dates: start: 20090401
  7. FLUDARA [Suspect]
     Indication: BONE MARROW CONDITIONING REGIMEN
     Dosage: UNK, UNK
     Route: 065
     Dates: start: 20090215, end: 20090220
  8. FLUDARA [Suspect]
     Indication: NON-HODGKIN'S LYMPHOMA
     Dosage: 25 MG/M2, QDX4
     Route: 065
  9. ELSPAR [Concomitant]
     Dosage: 6000 OTHER, U/M2
     Route: 065
  10. METHYLPREDNISOLONE SODIUM SUCCINATE [Concomitant]
     Indication: PRECURSOR T-LYMPHOBLASTIC LYMPHOMA/LEUKAEMIA
     Dosage: UNK, UNK
     Route: 042
     Dates: start: 20090401
  11. METHYLPREDNISOLONE SODIUM SUCCINATE [Concomitant]
     Route: 042
     Dates: start: 20090401
  12. CYCLOPHOSPHAMIDE [Suspect]
     Indication: PRECURSOR T-LYMPHOBLASTIC LYMPHOMA/LEUKAEMIA
     Dosage: 10 MG/KG, QDX4
     Route: 065
  13. PREDNISOLONE [Concomitant]
     Dosage: 30 MG/M2, QDX3
     Route: 065
  14. VINCRISTINE SULFATE [Concomitant]
     Dosage: 1.5 MG/M2, UNK
     Route: 065
  15. CYCLOPHOSPHAMIDE [Suspect]
     Indication: CONGENITAL APLASTIC ANAEMIA
     Dosage: UNK
     Route: 065
     Dates: start: 20080201
  16. TACROLIMUS [Concomitant]
     Indication: PROPHYLAXIS AGAINST GRAFT VERSUS HOST DISEASE
     Dosage: UNK, UNK
     Route: 065
  17. METHOTREXATE [Concomitant]
     Indication: PROPHYLAXIS AGAINST GRAFT VERSUS HOST DISEASE
     Dosage: UNK, UNK
     Route: 065
  18. CYCLOPHOSPHAMIDE [Suspect]
     Indication: BONE MARROW CONDITIONING REGIMEN
     Dosage: UNK, UNK
     Route: 065
     Dates: start: 20090401
  19. CYTARABINE [Concomitant]
     Indication: NON-HODGKIN'S LYMPHOMA
     Dosage: 300 MG/M2, QDX3
     Route: 065
  20. CYCLOPHOSPHAMIDE [Concomitant]
     Indication: NON-HODGKIN'S LYMPHOMA
     Dosage: 10 MG/KG, UNK
     Route: 065
  21. VINDESINE [Concomitant]
     Indication: NON-HODGKIN'S LYMPHOMA
     Dosage: UNK
     Route: 065
  22. FLUDARA [Suspect]
     Dosage: 30 MG/M2, QDX3
     Route: 065
  23. ANTI-THYMOCYTE GLOBULIN RABBIT NOS [Suspect]
     Indication: CONGENITAL APLASTIC ANAEMIA
     Dosage: 1.25 MG/KG, QDX4
     Route: 065
     Dates: start: 20080201
  24. PREDNISOLONE [Concomitant]
     Indication: PRECURSOR T-LYMPHOBLASTIC LYMPHOMA/LEUKAEMIA
     Dosage: UNK
     Route: 065
     Dates: start: 20090401
  25. ELSPAR [Concomitant]
     Indication: PRECURSOR T-LYMPHOBLASTIC LYMPHOMA/LEUKAEMIA
     Dosage: UNK
     Route: 042
     Dates: start: 20090401
  26. METHYLPREDNISOLONE [Concomitant]
     Indication: NON-HODGKIN'S LYMPHOMA
     Dosage: 30 MG/KG, UNK
     Route: 065

REACTIONS (8)
  - PRECURSOR T-LYMPHOBLASTIC LYMPHOMA/LEUKAEMIA [None]
  - CARDIO-RESPIRATORY ARREST [None]
  - MELAENA [None]
  - TOXICITY TO VARIOUS AGENTS [None]
  - UNEVALUABLE EVENT [None]
  - MALIGNANT PLEURAL EFFUSION [None]
  - ABDOMINAL PAIN [None]
  - DRUG EFFECT DECREASED [None]
